FAERS Safety Report 4548418-0 (Version None)
Quarter: 2004Q4

REPORT INFORMATION
  Report Type: 
  Country: None (occurrence: None)
  Receive Date: 20041227
  Receipt Date: 20041019
  Transmission Date: 20050328
  Serious: Yes (Death)
  Sender: FDA-Public Use
  Company Number: 04P-163-0277071-00

PATIENT
  Age: 64 Year
  Sex: Female

DRUGS (11)
  1. HUMIRA [Suspect]
     Indication: RHEUMATOID ARTHRITIS
     Dosage: 40 MG , 1 IN 2 W, SUBCUTANEOUS
     Route: 058
     Dates: start: 20040113, end: 20040422
  2. LEFLUNOMIDE [Concomitant]
  3. PREDNISONE [Concomitant]
  4. RISEDRONATE SODIUM [Concomitant]
  5. NAPROXEN [Concomitant]
  6. ALPRAZOLAM [Concomitant]
  7. CLIMETIDINE [Concomitant]
  8. VICODIN [Concomitant]
  9. GLUCOVAN [Concomitant]
  10. LISINOPRIL [Concomitant]
  11. ZESTORETIC [Concomitant]

REACTIONS (1)
  - DEATH [None]
